FAERS Safety Report 8947740 (Version 1)
Quarter: 2012Q4

REPORT INFORMATION
  Report Type: 
  Country: US (occurrence: US)
  Receive Date: 20121204
  Receipt Date: 20121204
  Transmission Date: 20130627
  Serious: No
  Sender: FDA-Public Use
  Company Number: US-BAYER-2012-118836

PATIENT
  Age: 57 Year
  Sex: Female

DRUGS (7)
  1. BETASERON [Suspect]
     Dosage: 0.3 mg, QOD
     Route: 058
  2. SYNTHROID [Concomitant]
     Dosage: 125 ?g, UNK
  3. BACLOFEN [Concomitant]
     Dosage: 10 mg, UNK
  4. POTASSIUM [Concomitant]
     Dosage: 75 mg, UNK
  5. CALCIUM [Concomitant]
     Dosage: 1200 chw, UNK
  6. BENICAR [Concomitant]
     Dosage: 40 mg, UNK
  7. VITAMIN B12 [Concomitant]
     Dosage: 2500 ?g, UNK
     Route: 058

REACTIONS (6)
  - Herpes zoster [None]
  - Injection site reaction [None]
  - Chills [None]
  - Headache [None]
  - Sensation of heaviness [Unknown]
  - Hypoaesthesia [Unknown]
